FAERS Safety Report 25719811 (Version 2)
Quarter: 2025Q3

REPORT INFORMATION
  Report Type: Spontaneous
  Country: CN (occurrence: CN)
  Receive Date: 20250825
  Receipt Date: 20250918
  Transmission Date: 20251020
  Serious: Yes (Hospitalization, Other)
  Sender: SANOFI AVENTIS
  Company Number: CN-DialogSolutions-SAAVPROD-PI812637-C1

PATIENT
  Age: 46 Year
  Sex: Female

DRUGS (3)
  1. DUPIXENT [Suspect]
     Active Substance: DUPILUMAB
     Indication: Dermatitis atopic
     Route: 058
     Dates: start: 202405, end: 202405
  2. DUPIXENT [Suspect]
     Active Substance: DUPILUMAB
     Dosage: 300 MG, QOW
     Route: 058
     Dates: start: 20240611, end: 20240611
  3. DUPIXENT [Suspect]
     Active Substance: DUPILUMAB
     Dosage: 300 MG, QOW
     Route: 058
     Dates: start: 20240625, end: 20240625

REACTIONS (12)
  - Generalised pustular psoriasis [Recovered/Resolved]
  - Erythema [Recovered/Resolved]
  - Papule [Recovered/Resolved]
  - Rash papular [Recovered/Resolved]
  - Pustule [Recovered/Resolved]
  - Leukocytosis [Recovered/Resolved]
  - Hyperkeratosis [Recovered/Resolved]
  - Parakeratosis [Recovered/Resolved]
  - Subcutaneous abscess [Recovered/Resolved]
  - Skin exfoliation [Recovered/Resolved]
  - Skin lesion [Recovered/Resolved]
  - Rash [Recovered/Resolved]
